FAERS Safety Report 19242053 (Version 1)
Quarter: 2021Q2

REPORT INFORMATION
  Report Type: Spontaneous
  Country: US (occurrence: US)
  Receive Date: 20210511
  Receipt Date: 20210511
  Transmission Date: 20210717
  Serious: Yes (Hospitalization)
  Sender: FDA-Public Use
  Company Number: US-ELITE LABORATORIES INC.-2021ELT00064

PATIENT
  Age: 33 Year
  Sex: Female

DRUGS (1)
  1. NALTREXONE [Suspect]
     Active Substance: NALTREXONE
     Indication: ALCOHOL DETOXIFICATION
     Dosage: UNK
     Route: 065

REACTIONS (2)
  - Serum sickness-like reaction [Recovered/Resolved]
  - Eosinophilic pneumonia [Recovered/Resolved]
